FAERS Safety Report 17809228 (Version 1)
Quarter: 2020Q2

REPORT INFORMATION
  Report Type: Spontaneous
  Country: AR (occurrence: AR)
  Receive Date: 20200520
  Receipt Date: 20200520
  Transmission Date: 20200714
  Serious: Yes (Other)
  Sender: FDA-Public Use
  Company Number: AR-SA-2018SA223919

PATIENT
  Sex: Male

DRUGS (2)
  1. OPTAMOX [AMOXICILLIN TRIHYDRATE] [Concomitant]
     Indication: SINUSITIS
  2. ALLEGRA [Suspect]
     Active Substance: FEXOFENADINE HYDROCHLORIDE
     Indication: NASAL DECONGESTION THERAPY
     Dosage: ONCE
     Route: 048

REACTIONS (1)
  - Tremor [Recovered/Resolved]
